FAERS Safety Report 7224625-3 (Version None)
Quarter: 2011Q1

REPORT INFORMATION
  Report Type: 
  Country: None (occurrence: None)
  Receive Date: 20110113
  Receipt Date: 20110103
  Transmission Date: 20110831
  Serious: Yes (Hospitalization)
  Sender: FDA-Public Use
  Company Number: US-PFIZER INC-2011001798

PATIENT
  Sex: Female

DRUGS (5)
  1. DILANTIN [Suspect]
  2. BLINDED THERAPY [Suspect]
     Indication: THROMBOSIS PROPHYLAXIS
     Dosage: UNK
     Route: 048
     Dates: start: 20091217
  3. ZOLPIDEM [Concomitant]
     Dosage: UNK
     Dates: start: 20101008
  4. CARVEDILOL [Concomitant]
  5. LOVASTATIN [Concomitant]
     Dosage: UNK
     Dates: start: 20100204

REACTIONS (2)
  - FEBRILE CONVULSION [None]
  - TOXICITY TO VARIOUS AGENTS [None]
